FAERS Safety Report 5741293-8 (Version None)
Quarter: 2008Q2

REPORT INFORMATION
  Report Type: 
  Country: None (occurrence: None)
  Receive Date: 20080514
  Receipt Date: 20080502
  Transmission Date: 20081010
  Serious: Yes (Other)
  Sender: FDA-Public Use
  Company Number: TPA2008A00640

PATIENT
  Age: 49 Year
  Sex: Female
  Weight: 79.8331 kg

DRUGS (9)
  1. ACTOS [Suspect]
     Indication: TYPE 2 DIABETES MELLITUS
     Dosage: 15 MG, 1 IN 1 D, PER ORAL; 15 MG, 2 IN 1 D, PER ORAL
     Dates: start: 20080318, end: 20080301
  2. ACTOS [Suspect]
     Indication: TYPE 2 DIABETES MELLITUS
     Dosage: 15 MG, 1 IN 1 D, PER ORAL; 15 MG, 2 IN 1 D, PER ORAL
     Dates: start: 20080301, end: 20080401
  3. DUETACT [Suspect]
     Indication: TYPE 2 DIABETES MELLITUS
     Dosage: 2 MG/30 MG, QAM, PER ORAL
     Route: 048
     Dates: start: 20080401
  4. TYLOX [Suspect]
     Indication: CHEST PAIN
     Dosage: AS REQUIRED, PER ORAL
     Route: 048
     Dates: start: 20080430
  5. PROMETHAZINE/CODEINE (PROMETHAZINE, CODEINE) [Suspect]
     Indication: COUGH
     Dosage: 1 IN 1 D, PER ORAL
     Route: 048
     Dates: start: 20080430
  6. ALLEGRA D (PSEUDOEPHEDRINE HYDROCHLORIDE, FEXOFENADINE HYDROCHLORIDE) [Concomitant]
  7. ALBUTEROL [Concomitant]
  8. ZOPINEX (LEVOSALBUTAMOL HYDROCHLORIDE) [Concomitant]
  9. VANTIN [Concomitant]

REACTIONS (20)
  - APHONIA [None]
  - ASTHENIA [None]
  - BLOOD GLUCOSE INCREASED [None]
  - CHEST PAIN [None]
  - COUGH [None]
  - DRUG INEFFECTIVE [None]
  - DYSPNOEA [None]
  - FALL [None]
  - INSOMNIA [None]
  - LIMB INJURY [None]
  - LOSS OF CONSCIOUSNESS [None]
  - MALAISE [None]
  - PNEUMOCOCCAL INFECTION [None]
  - PULMONARY CONGESTION [None]
  - RESPIRATORY DISORDER [None]
  - RESPIRATORY TRACT INFECTION [None]
  - SLUGGISHNESS [None]
  - SOMNOLENCE [None]
  - SPUTUM CULTURE POSITIVE [None]
  - THROAT IRRITATION [None]
